FAERS Safety Report 18927579 (Version 7)
Quarter: 2021Q4

REPORT INFORMATION
  Report Type: Spontaneous
  Country: IT (occurrence: IT)
  Receive Date: 20210223
  Receipt Date: 20211231
  Transmission Date: 20220303
  Serious: Yes (Other)
  Sender: FDA-Public Use
  Company Number: IT-AMGEN-ITASP2021025793

PATIENT
  Age: 59 Year
  Sex: Female
  Weight: 82 kg

DRUGS (33)
  1. TRASTUZUMAB [Suspect]
     Active Substance: TRASTUZUMAB
     Indication: HER2 positive breast cancer
     Dosage: 130 MICROGRAM
     Route: 042
     Dates: start: 20190314, end: 20190610
  2. TRASTUZUMAB [Suspect]
     Active Substance: TRASTUZUMAB
     Dosage: 2 MICROGRAM/KILOGRAM, QWK
     Route: 042
     Dates: start: 20201215, end: 20210107
  3. IVABRADINE [Suspect]
     Active Substance: IVABRADINE
     Indication: Product used for unknown indication
     Dosage: UNK
     Route: 042
     Dates: start: 20151118
  4. IVABRADINE [Suspect]
     Active Substance: IVABRADINE
     Dosage: 840 MILLIGRAM, Q3WK
     Route: 042
     Dates: start: 20190314, end: 20190314
  5. IVABRADINE [Suspect]
     Active Substance: IVABRADINE
     Dosage: 130 MILLIGRAM
     Route: 042
     Dates: start: 20190314, end: 20190610
  6. IVABRADINE [Suspect]
     Active Substance: IVABRADINE
     Dosage: 25 MILLIGRAM, QD
     Route: 048
     Dates: start: 20190819, end: 20200422
  7. IVABRADINE [Suspect]
     Active Substance: IVABRADINE
     Dosage: 3.6 MICROGRAM/KILOGRAM, Q3WK
     Route: 048
     Dates: start: 20200506, end: 20201104
  8. IVABRADINE [Suspect]
     Active Substance: IVABRADINE
     Dosage: 25 MILLIGRAM, QD
     Route: 042
     Dates: start: 20201215, end: 20210107
  9. PACLITAXEL [Suspect]
     Active Substance: PACLITAXEL
     Indication: HER2 positive breast cancer
     Dosage: 130 MILLIGRAM
     Route: 042
     Dates: start: 20190314, end: 20190610
  10. PACLITAXEL [Suspect]
     Active Substance: PACLITAXEL
     Dosage: 130 MILLIGRAM
     Route: 042
     Dates: end: 20190617
  11. ADO-TRASTUZUMAB EMTANSINE [Suspect]
     Active Substance: ADO-TRASTUZUMAB EMTANSINE
     Indication: HER2 positive breast cancer
     Dosage: 3.6 MICROGRAM/KILOGRAM, Q3WK
     Route: 042
     Dates: start: 20200506, end: 20201104
  12. ADO-TRASTUZUMAB EMTANSINE [Suspect]
     Active Substance: ADO-TRASTUZUMAB EMTANSINE
     Dosage: 3.6 MICROGRAM/KILOGRAM, Q3WK
     Route: 042
     Dates: end: 20201215
  13. ADO-TRASTUZUMAB EMTANSINE [Suspect]
     Active Substance: ADO-TRASTUZUMAB EMTANSINE
     Dosage: 3.6 MICROGRAM/KILOGRAM, Q3WK (DATE OF MOST RECENT DOSE RECEIVED PRIOR TO THE EVENT)
     Route: 042
     Dates: start: 20201104
  14. PERTUZUMAB [Suspect]
     Active Substance: PERTUZUMAB
     Indication: HER2 positive breast cancer
     Dosage: 840 MILLIGRAM, Q3WK
     Route: 042
     Dates: start: 20190314, end: 20190314
  15. PERTUZUMAB [Suspect]
     Active Substance: PERTUZUMAB
     Dosage: 840 MILLIGRAM, Q3WK (DATE OF MOST RECENT DOSE RECEIVED PRIOR TO THE EVENT ONSET: 08/APR/2019)
     Route: 042
     Dates: start: 20190408
  16. EXEMESTANE [Suspect]
     Active Substance: EXEMESTANE
     Indication: HER2 positive breast cancer
     Dosage: 25 MILLIGRAM, QD
     Route: 048
     Dates: start: 20190819, end: 20200422
  17. EXEMESTANE [Suspect]
     Active Substance: EXEMESTANE
     Dosage: 25 MILLIGRAM, QD (DATE OF MOST RECENT DOSE OF EXEMESTANE RECEIVED PRIOR TO THE EVENT ONSET: 22/APR/2
     Route: 048
     Dates: start: 20200422
  18. VINORELBINE [Suspect]
     Active Substance: VINORELBINE TARTRATE
     Indication: HER2 positive breast cancer
     Dosage: UNK MILLIGRAM/SQ. METER
     Route: 042
     Dates: start: 20201215
  19. BISOPROLOL [Concomitant]
     Active Substance: BISOPROLOL
     Indication: Product used for unknown indication
     Dosage: UNK
     Dates: start: 20151118
  20. BISOPROLOL [Concomitant]
     Active Substance: BISOPROLOL
     Dosage: UNK
     Dates: start: 20200709
  21. CHOLECALCIFEROL [Concomitant]
     Active Substance: CHOLECALCIFEROL
  22. QUETIAPINE FUMARATE [Concomitant]
     Active Substance: QUETIAPINE FUMARATE
     Indication: Product used for unknown indication
  23. URSODIOL [Concomitant]
     Active Substance: URSODIOL
     Indication: Product used for unknown indication
     Dosage: UNK
     Dates: start: 20200709
  24. DEXAMETHASONE [Concomitant]
     Active Substance: DEXAMETHASONE
  25. CLARITHROMYCIN [Concomitant]
     Active Substance: CLARITHROMYCIN
  26. CYMBALTA [Concomitant]
     Active Substance: DULOXETINE HYDROCHLORIDE
  27. RANITIDINE [Concomitant]
     Active Substance: RANITIDINE
  28. HEPARIN SODIUM [Concomitant]
     Active Substance: HEPARIN SODIUM
  29. AMOXICILLIN [Concomitant]
     Active Substance: AMOXICILLIN
  30. ALIZAPRIDE [Concomitant]
     Active Substance: ALIZAPRIDE
  31. CHLORPHENIRAMINE MALEATE [Concomitant]
     Active Substance: CHLORPHENIRAMINE MALEATE
  32. HYDROCORTISONE [Concomitant]
     Active Substance: HYDROCORTISONE
  33. ONDANSETRON [Concomitant]
     Active Substance: ONDANSETRON

REACTIONS (2)
  - Neutropenia [Recovered/Resolved]
  - Off label use [Unknown]

NARRATIVE: CASE EVENT DATE: 20190314
